FAERS Safety Report 13421784 (Version 1)
Quarter: 2017Q2

REPORT INFORMATION
  Report Type: Spontaneous
  Country: FR (occurrence: FR)
  Receive Date: 20170410
  Receipt Date: 20170410
  Transmission Date: 20170830
  Serious: Yes (Life-Threatening, Hospitalization)
  Sender: FDA-Public Use
  Company Number: FR-ACCORD-049999

PATIENT
  Age: 77 Year
  Sex: Male

DRUGS (8)
  1. DOCETAXEL ACCORD [Suspect]
     Active Substance: DOCETAXEL
     Indication: PROSTATE CANCER METASTATIC
     Dosage: STRENGTH: 160 MG/8ML (150 MG ONE SINGLE INTAKE)
     Route: 042
     Dates: start: 20170123, end: 20170123
  2. KARDEGIC [Concomitant]
     Active Substance: ASPIRIN LYSINE
     Dosage: POWDER FOR ORAL SOLUTION IN SACHET-DOSE
     Route: 048
     Dates: start: 20170209
  3. XANAX [Concomitant]
     Active Substance: ALPRAZOLAM
     Dosage: IF NEEDED
     Route: 048
     Dates: start: 20170209
  4. VOLTARENE [Concomitant]
     Active Substance: DICLOFENAC SODIUM
     Dosage: VOLTARENE EMULGEL 1 %,?IF NEEDED VIA TOPICAL ROUTE.
     Route: 061
     Dates: start: 20170209
  5. ADENURIC [Concomitant]
     Active Substance: FEBUXOSTAT
     Route: 048
     Dates: start: 20170209
  6. COTAREG [Concomitant]
     Active Substance: HYDROCHLOROTHIAZIDE\VALSARTAN
     Route: 048
     Dates: start: 20170209
  7. DEROXAT [Concomitant]
     Active Substance: PAROXETINE HYDROCHLORIDE
     Dosage: LONG TERM TREATMENT, DIVISIBLE COATED TABLET
     Route: 048
     Dates: start: 20170209
  8. CACIT VITAMINE D3 [Concomitant]
     Active Substance: CALCIUM CARBONATE\CHOLECALCIFEROL
     Route: 048
     Dates: start: 20170209

REACTIONS (2)
  - Colitis ulcerative [Recovered/Resolved]
  - Septic shock [Unknown]

NARRATIVE: CASE EVENT DATE: 20170131
